FAERS Safety Report 9352928 (Version 3)
Quarter: 2013Q3

REPORT INFORMATION
  Report Type: Report from Study
  Country: DE (occurrence: DE)
  Receive Date: 20130618
  Receipt Date: 20130807
  Transmission Date: 20140515
  Serious: Yes (Life-Threatening, Hospitalization)
  Sender: FDA-Public Use
  Company Number: DE-ROCHE-1225119

PATIENT
  Age: 52 Year
  Sex: Male

DRUGS (4)
  1. BLINDED ONARTUZUMAB [Suspect]
     Indication: NON-SMALL CELL LUNG CANCER
     Dosage: DATE OF MOST RECENT DOSE OF BLINDED RITUXIMAB PRIOR TO AE 08/MAY/2013
     Route: 042
     Dates: start: 20130304
  2. BEVACIZUMAB [Suspect]
     Indication: NON-SMALL CELL LUNG CANCER
     Dosage: DATE OF MOST RECENT DOSE OF BEVACIZUMAB PRIOR TO AE 08/MAY/2013
     Route: 042
     Dates: start: 20130304
  3. CARBOPLATIN [Suspect]
     Indication: NON-SMALL CELL LUNG CANCER
     Dosage: DATE OF MOST RECENT DOSE OF CARBOPLATIN PRIOR TO AE 08/MAY/2013, LAST DOSE RECEIVED 663.2 MG
     Route: 042
     Dates: start: 20130304
  4. PACLITAXEL [Suspect]
     Indication: NON-SMALL CELL LUNG CANCER
     Dosage: DATE OF MOST RECENT DOSE OF PACLITAXEL PRIOR TO AE 08/MAY/2013, LAST DOSE RECEIVED 323.3 MG
     Route: 042
     Dates: start: 20130504

REACTIONS (2)
  - Anaemia [Not Recovered/Not Resolved]
  - Anaemia [Recovered/Resolved]
